FAERS Safety Report 10886058 (Version 1)
Quarter: 2015Q1

REPORT INFORMATION
  Report Type: Spontaneous
  Country: US (occurrence: None)
  Receive Date: 20150302
  Receipt Date: 20150302
  Transmission Date: 20150721
  Serious: Yes (Hospitalization)
  Sender: FDA-Public Use
  Company Number: USW201502-000048

PATIENT
  Age: 61 Year
  Sex: Female

DRUGS (1)
  1. APOKYN [Suspect]
     Active Substance: APOMORPHINE HYDROCHLORIDE
     Indication: PARKINSON^S DISEASE
     Dosage: 0.2 MG, UP TO 5 TIMES A DAY; SITE: ABDOMEN, SUBCUTANEOUS
     Route: 058
     Dates: start: 20150211, end: 20150213

REACTIONS (3)
  - Upper limb fracture [None]
  - Hip fracture [None]
  - Fall [None]

NARRATIVE: CASE EVENT DATE: 20150214
